FAERS Safety Report 9830914 (Version 2)
Quarter: 2014Q1

REPORT INFORMATION
  Report Type: Spontaneous
  Country: VE (occurrence: VE)
  Receive Date: 20140120
  Receipt Date: 20140120
  Transmission Date: 20141002
  Serious: Yes (Other)
  Sender: FDA-Public Use
  Company Number: PHHY2013VE127579

PATIENT
  Sex: Female

DRUGS (2)
  1. FORADILE [Suspect]
     Indication: ASTHMA
     Dosage: 12 UG, DAILY
     Route: 055
  2. MIFLONIDE [Suspect]
     Indication: ASTHMA
     Dosage: 200 UG, DAILY
     Route: 055

REACTIONS (4)
  - Asphyxia [Not Recovered/Not Resolved]
  - Asthmatic crisis [Not Recovered/Not Resolved]
  - Influenza [Not Recovered/Not Resolved]
  - Asthma [Not Recovered/Not Resolved]
